FAERS Safety Report 8127263-3 (Version None)
Quarter: 2012Q1

REPORT INFORMATION
  Report Type: 
  Country: None (occurrence: None)
  Receive Date: 20120210
  Receipt Date: 20120206
  Transmission Date: 20120608
  Serious: No
  Sender: FDA-Public Use
  Company Number: PHEH2012US002600

PATIENT
  Sex: Female
  Weight: 115.19 kg

DRUGS (5)
  1. GILENYA [Suspect]
     Indication: MULTIPLE SCLEROSIS
     Dosage: 0.5 MG, QD
     Route: 048
     Dates: start: 20111103
  2. BENCLAR HCT [Concomitant]
  3. CARTIA XT [Concomitant]
     Dosage: 240 MG, QD
  4. CLARADIN [Concomitant]
  5. AMPYRA [Concomitant]
     Dosage: 10 MG, ONE TAB A DAY

REACTIONS (8)
  - SUPRAVENTRICULAR TACHYCARDIA [None]
  - CYSTITIS [None]
  - NYSTAGMUS [None]
  - FATIGUE [None]
  - JOINT HYPEREXTENSION [None]
  - ERYTHEMA [None]
  - URINARY INCONTINENCE [None]
  - VIBRATION TEST ABNORMAL [None]
